FAERS Safety Report 19728801 (Version 1)
Quarter: 2021Q3

REPORT INFORMATION
  Report Type: Spontaneous
  Country: US (occurrence: US)
  Receive Date: 20210820
  Receipt Date: 20210820
  Transmission Date: 20211014
  Serious: No
  Sender: FDA-Public Use
  Company Number: US-ASTRAZENECA-2021A638564

PATIENT
  Sex: Male

DRUGS (2)
  1. OTREXUP [Concomitant]
     Active Substance: METHOTREXATE
     Dosage: 22.5MG UNKNOWN
     Route: 065
  2. ROSUVASTATIN. [Suspect]
     Active Substance: ROSUVASTATIN
     Indication: RHEUMATOID ARTHRITIS
     Route: 048

REACTIONS (2)
  - Nausea [Unknown]
  - Off label use [Unknown]
